FAERS Safety Report 10585370 (Version 1)
Quarter: 2014Q4

REPORT INFORMATION
  Report Type: Spontaneous
  Country: SE (occurrence: None)
  Receive Date: 20141113
  Receipt Date: 20141113
  Transmission Date: 20150529
  Serious: Yes (Hospitalization, Other)
  Sender: FDA-Public Use
  Company Number: SE-ZYDUS-005443

PATIENT
  Age: 66 Year
  Sex: Male

DRUGS (3)
  1. METFORMIN [Suspect]
     Active Substance: METFORMIN HYDROCHLORIDE
  2. ALLOPURINOL (ALLOPURINOL) [Suspect]
     Active Substance: ALLOPURINOL
     Indication: GOUT
  3. ACE INHIBITOR NOS [Concomitant]
     Active Substance: UNSPECIFIED INGREDIENT

REACTIONS (11)
  - Lactic acidosis [None]
  - Abdominal pain upper [None]
  - Renal failure [None]
  - Respiratory disorder [None]
  - Depressed level of consciousness [None]
  - Circulatory collapse [None]
  - Toxicity to various agents [None]
  - Shock [None]
  - Back pain [None]
  - Vomiting [None]
  - Blood pressure increased [None]
